FAERS Safety Report 7145247 (Version 3)
Quarter: 2012Q4

REPORT INFORMATION
  Report Type: 
  Country: US (occurrence: US)
  Receive Date: 20091009
  Receipt Date: 20121220
  Transmission Date: 20130627
  Serious: Yes (Hospitalization, Other)
  Sender: FDA-Public Use
  Company Number: US-ELI_LILLY_AND_COMPANY-US200908005967

PATIENT
  Age: 47 Year
  Sex: Male

DRUGS (13)
  1. BYETTA [Suspect]
     Dosage: 10 ug, each morning
     Dates: start: 200605, end: 200609
  2. DIOVAN HCT [Concomitant]
     Dosage: UNK, each morning
  3. METAGLIP [Concomitant]
     Dosage: UNK, 2/D
  4. PAXIL [Concomitant]
     Dosage: 40 mg, each morning
  5. NEXIUM [Concomitant]
     Dosage: 40 mg, UNK
  6. ALLEGRA-D /01367401/ [Concomitant]
     Dosage: UNK, 2/D
  7. LIPITOR [Concomitant]
     Dosage: 10 mg, each evening
  8. AVANDIA [Concomitant]
     Dosage: 4 mg, each morning
  9. WELLBUTRIN XL [Concomitant]
     Dosage: 450 mg, each morning
  10. MULTIVITAMIN                       /00831701/ [Concomitant]
  11. VITAMIN B COMPLEX [Concomitant]
  12. HUMALOG [Concomitant]
  13. INSULIN GLARGINE [Concomitant]

REACTIONS (3)
  - Pancreatitis acute [Recovered/Resolved]
  - Pancreatitis chronic [Unknown]
  - Pancreatitis acute [Recovering/Resolving]
